FAERS Safety Report 18290982 (Version 3)
Quarter: 2024Q1

REPORT INFORMATION
  Report Type: Spontaneous
  Country: CA (occurrence: None)
  Receive Date: 20200921
  Receipt Date: 20240213
  Transmission Date: 20240409
  Serious: Yes (Other)
  Sender: FDA-Public Use
  Company Number: 2020SF18424

PATIENT
  Age: 84 Year
  Sex: Female
  Weight: 63 kg

DRUGS (2)
  1. OMEPRAZOLE [Suspect]
     Active Substance: OMEPRAZOLE
     Indication: Gastrooesophageal reflux disease
     Route: 048
  2. ATORVASTATIN CALCIUM [Suspect]
     Active Substance: ATORVASTATIN CALCIUM
     Indication: Hyperlipidaemia
     Route: 048

REACTIONS (4)
  - Gastrooesophageal reflux disease [Unknown]
  - Condition aggravated [Unknown]
  - Abdominal discomfort [Unknown]
  - Product substitution issue [Unknown]
